FAERS Safety Report 8907008 (Version 1)
Quarter: 2012Q4

REPORT INFORMATION
  Report Type: 
  Country: IN (occurrence: IN)
  Receive Date: 20121114
  Receipt Date: 20121114
  Transmission Date: 20130627
  Serious: Yes (Other)
  Sender: FDA-Public Use
  Company Number: IN-SANOFI-AVENTIS-2012SA083218

PATIENT
  Sex: Male

DRUGS (7)
  1. ISONIAZID [Suspect]
     Indication: TUBERCULOUS MENINGITIS
     Route: 065
     Dates: start: 200408, end: 200508
  2. RIFAMPICIN [Suspect]
     Indication: TUBERCULOUS MENINGITIS
     Route: 065
     Dates: start: 200408, end: 200508
  3. ETHAMBUTOL [Suspect]
     Indication: TUBERCULOUS MENINGITIS
     Route: 065
     Dates: start: 200408, end: 200410
  4. PYRAZINAMIDE [Suspect]
     Indication: TUBERCULOUS MENINGITIS
     Route: 065
     Dates: start: 200408, end: 200410
  5. STREPTOMYCIN [Suspect]
     Indication: TUBERCULOUS MENINGITIS
     Route: 065
     Dates: start: 200408, end: 200408
  6. CIPROFLOXACIN [Concomitant]
     Dates: start: 200408
  7. CORTICOSTEROID NOS [Concomitant]
     Dates: start: 200408

REACTIONS (2)
  - Tuberculoma of central nervous system [Unknown]
  - Paradoxical drug reaction [Unknown]
